FAERS Safety Report 8000152-0 (Version None)
Quarter: 2011Q4

REPORT INFORMATION
  Report Type: 
  Country: None (occurrence: None)
  Receive Date: 20111220
  Receipt Date: 20111220
  Transmission Date: 20120403
  Serious: Yes (Hospitalization)
  Sender: FDA-Public Use
  Company Number: None

PATIENT
  Sex: Male
  Weight: 20.3 kg

DRUGS (4)
  1. VINCRISTINE SULFATE [Suspect]
     Dosage: 4.8 MG  VCR 1.2MGS GIVEN
     Dates: start: 20111031
  2. VINCRISTINE SULFATE [Suspect]
     Dosage: 4.8 MG  VCR 1.2MGS GIVEN
     Dates: start: 20111107
  3. VINCRISTINE SULFATE [Suspect]
     Dosage: 4.8 MG  VCR 1.2MGS GIVEN
     Dates: start: 20111024
  4. VINCRISTINE SULFATE [Suspect]
     Dosage: 4.8 MG  VCR 1.2MGS GIVEN
     Dates: start: 20111114

REACTIONS (2)
  - ASTHENIA [None]
  - GUILLAIN-BARRE SYNDROME [None]
